FAERS Safety Report 7797631-8 (Version None)
Quarter: 2011Q4

REPORT INFORMATION
  Report Type: 
  Country: None (occurrence: None)
  Receive Date: 20111005
  Receipt Date: 20110920
  Transmission Date: 20120403
  Serious: Yes (Other)
  Sender: FDA-Public Use
  Company Number: GB-ARROW GEN-2011-15073

PATIENT
  Age: 48 Year
  Sex: Male

DRUGS (2)
  1. CITALOPRAM HYDROBROMIDE [Suspect]
     Indication: PRODUCT USED FOR UNKNOWN INDICATION
     Dosage: UNK
  2. SERTRALINE HYDROCHLORIDE [Suspect]
     Indication: PRODUCT USED FOR UNKNOWN INDICATION

REACTIONS (12)
  - TERMINAL INSOMNIA [None]
  - MENTAL DISORDER [None]
  - NEGLECT OF PERSONAL APPEARANCE [None]
  - AGGRESSION [None]
  - DISORIENTATION [None]
  - DECREASED INTEREST [None]
  - CONFUSIONAL STATE [None]
  - LIBIDO DISORDER [None]
  - MUSCLE SPASMS [None]
  - SLEEP DISORDER [None]
  - NIGHTMARE [None]
  - ERECTILE DYSFUNCTION [None]
